FAERS Safety Report 7210656-6 (Version None)
Quarter: 2011Q1

REPORT INFORMATION
  Report Type: 
  Country: None (occurrence: None)
  Receive Date: 20110105
  Receipt Date: 20101227
  Transmission Date: 20110831
  Serious: Yes (Other)
  Sender: FDA-Public Use
  Company Number: US-PFIZER INC-2010179613

PATIENT
  Sex: Female
  Weight: 90.703 kg

DRUGS (2)
  1. TOPAMAX [Concomitant]
     Indication: MIGRAINE
     Dosage: UNK
  2. EFFEXOR XR [Suspect]
     Indication: DEPRESSION
     Dosage: 150 MG, DAILY
     Route: 048
     Dates: start: 20070101, end: 20101201

REACTIONS (4)
  - ARTHRITIS [None]
  - CONFUSIONAL STATE [None]
  - DIZZINESS [None]
  - HEAD DISCOMFORT [None]
